FAERS Safety Report 7460127-7 (Version None)
Quarter: 2011Q2

REPORT INFORMATION
  Report Type: 
  Country: None (occurrence: None)
  Receive Date: 20110505
  Receipt Date: 20110428
  Transmission Date: 20111010
  Serious: Yes (Hospitalization, Other)
  Sender: FDA-Public Use
  Company Number: BR-ELI_LILLY_AND_COMPANY-BR201103007932

PATIENT
  Sex: Female
  Weight: 75 kg

DRUGS (5)
  1. HUMALOG [Suspect]
     Indication: TYPE 1 DIABETES MELLITUS
     Dosage: 30 IU, QD
     Route: 065
  2. ALLOPURINOL [Concomitant]
     Indication: BLOOD URIC ACID
     Dosage: UNK, QD
     Route: 065
  3. ENALAPRIL [Concomitant]
     Indication: HYPERTENSION
     Dosage: UNK, BID
     Route: 065
  4. LEVEMIR [Concomitant]
     Indication: DIABETES MELLITUS
     Dosage: UNK, QD
  5. EPOGEN [Concomitant]
     Indication: ANAEMIA
     Dosage: UNK, OTHER
     Route: 065

REACTIONS (5)
  - RETINAL DETACHMENT [None]
  - BLOOD GLUCOSE ABNORMAL [None]
  - EYE HAEMORRHAGE [None]
  - BLOOD GLUCOSE INCREASED [None]
  - EYE OPERATION [None]
